FAERS Safety Report 14580107 (Version 2)
Quarter: 2018Q2

REPORT INFORMATION
  Report Type: Report from Study
  Country: None (occurrence: US)
  Receive Date: 20180228
  Receipt Date: 20180409
  Transmission Date: 20180711
  Serious: Yes (Hospitalization, Other)
  Sender: FDA-Public Use
  Company Number: US-ABBVIE-17K-163-1913679-00

PATIENT
  Age: 63 Year
  Sex: Female

DRUGS (3)
  1. HUMIRA [Suspect]
     Active Substance: ADALIMUMAB
     Route: 058
     Dates: start: 201801
  2. INVOKANA [Suspect]
     Active Substance: CANAGLIFLOZIN
     Indication: PRODUCT USED FOR UNKNOWN INDICATION
     Route: 065
  3. HUMIRA [Suspect]
     Active Substance: ADALIMUMAB
     Indication: CROHN^S DISEASE
     Route: 058

REACTIONS (16)
  - Back pain [Not Recovered/Not Resolved]
  - Constipation [Unknown]
  - Type 2 diabetes mellitus [Unknown]
  - Blood iron decreased [Unknown]
  - Apparent life threatening event [Unknown]
  - Urinary tract infection [Unknown]
  - Haematochezia [Unknown]
  - Stress [Unknown]
  - Fatigue [Unknown]
  - Nerve compression [Unknown]
  - Crohn^s disease [Recovering/Resolving]
  - Hypophagia [Unknown]
  - Heart rate abnormal [Unknown]
  - Oxygen saturation decreased [Unknown]
  - Cardiac disorder [Unknown]
  - Dyspnoea [Unknown]

NARRATIVE: CASE EVENT DATE: 20171215
